FAERS Safety Report 7268346-X (Version None)
Quarter: 2011Q1

REPORT INFORMATION
  Report Type: 
  Country: None (occurrence: None)
  Receive Date: 20110121
  Receipt Date: 20110111
  Transmission Date: 20110831
  Serious: Yes (Other)
  Sender: FDA-Public Use
  Company Number: TR-001469

PATIENT
  Sex: Female

DRUGS (1)
  1. NAGLAZYME [Suspect]
     Indication: MUCOPOLYSACCHARIDOSIS VI
     Dosage: (DOSE AND FREQUENCY NOT REPORTED INTRAVENOUS DRIP)
     Route: 041

REACTIONS (1)
  - THROMBOCYTOPENIA [None]
